FAERS Safety Report 19009689 (Version 1)
Quarter: 2021Q1

REPORT INFORMATION
  Report Type: Spontaneous
  Country: CN (occurrence: CN)
  Receive Date: 20210315
  Receipt Date: 20210315
  Transmission Date: 20210420
  Serious: Yes (Hospitalization)
  Sender: FDA-Public Use
  Company Number: CN-BEH-2021129300

PATIENT
  Age: 49 Year
  Sex: Male
  Weight: 70 kg

DRUGS (1)
  1. ALBURX [Suspect]
     Active Substance: ALBUMIN HUMAN
     Indication: HYPOPROTEINAEMIA
     Dosage: 10G*50 ML, QD
     Route: 041
     Dates: start: 20210301, end: 20210301

REACTIONS (9)
  - Respiratory rate increased [Recovering/Resolving]
  - Chills [Recovering/Resolving]
  - Heart rate increased [Recovering/Resolving]
  - Cough [Recovering/Resolving]
  - Body temperature increased [Unknown]
  - Dyspnoea [Recovering/Resolving]
  - Cyanosis [Unknown]
  - Oxygen saturation decreased [Recovering/Resolving]
  - Hypotension [Recovering/Resolving]

NARRATIVE: CASE EVENT DATE: 20210301
